FAERS Safety Report 18518232 (Version 1)
Quarter: 2020Q4

REPORT INFORMATION
  Report Type: Spontaneous
  Country: US (occurrence: US)
  Receive Date: 20201118
  Receipt Date: 20201118
  Transmission Date: 20210114
  Serious: No
  Sender: FDA-Public Use
  Company Number: US-ASTRAZENECA-2020SF38653

PATIENT
  Sex: Female
  Weight: 77.1 kg

DRUGS (7)
  1. MOTRIN [Concomitant]
     Active Substance: IBUPROFEN
     Indication: DRUG DEPENDENCE
  2. CHLORTHALIDONE. [Concomitant]
     Active Substance: CHLORTHALIDONE
     Indication: HYPERTENSION
  3. INSULIN [Concomitant]
     Active Substance: INSULIN NOS
     Dosage: 100 UNITS
  4. XANAX [Concomitant]
     Active Substance: ALPRAZOLAM
     Indication: DRUG DEPENDENCE
  5. EXENATIDE. [Suspect]
     Active Substance: EXENATIDE
     Route: 065
  6. BYDUREON [Suspect]
     Active Substance: EXENATIDE
     Indication: TYPE 2 DIABETES MELLITUS
     Route: 058
  7. ZOLOFT [Concomitant]
     Active Substance: SERTRALINE HYDROCHLORIDE

REACTIONS (4)
  - Hypertension [Not Recovered/Not Resolved]
  - Needle issue [Unknown]
  - Body height decreased [Unknown]
  - Weight increased [Unknown]
